FAERS Safety Report 10505750 (Version 3)
Quarter: 2014Q4

REPORT INFORMATION
  Report Type: Report from Study
  Country: US (occurrence: US)
  Receive Date: 20141008
  Receipt Date: 20141017
  Transmission Date: 20150528
  Serious: Yes (Hospitalization)
  Sender: FDA-Public Use
  Company Number: US-ACTELION-A-US2014-105771

PATIENT
  Age: 70 Year
  Sex: Male

DRUGS (3)
  1. VELETRI [Suspect]
     Active Substance: EPOPROSTENOL
     Indication: PULMONARY ARTERIAL HYPERTENSION
     Dosage: 6 NG/KG, PER MIN
     Route: 041
     Dates: start: 20140903
  2. VELETRI [Suspect]
     Active Substance: EPOPROSTENOL
     Dosage: 9 NG/KG, PER MIN
     Route: 041
     Dates: end: 2014
  3. SILDENAFIL. [Concomitant]
     Active Substance: SILDENAFIL

REACTIONS (8)
  - Immobile [Unknown]
  - Staring [Unknown]
  - Diarrhoea [Unknown]
  - Fall [Unknown]
  - Dysphagia [Unknown]
  - Tremor [Unknown]
  - Cerebrovascular accident [Unknown]
  - Flushing [Unknown]

NARRATIVE: CASE EVENT DATE: 201409
